FAERS Safety Report 9930437 (Version 1)
Quarter: 2014Q1

REPORT INFORMATION
  Report Type: Spontaneous
  Country: US (occurrence: US)
  Receive Date: 20140227
  Receipt Date: 20140227
  Transmission Date: 20141002
  Serious: No
  Sender: FDA-Public Use
  Company Number: US-AMGEN-USASP2013085039

PATIENT
  Age: 51 Year
  Sex: Male

DRUGS (2)
  1. ENBREL [Suspect]
     Indication: RHEUMATOID ARTHRITIS
     Dosage: UNK, WEEKLY
     Route: 065
     Dates: start: 20130312, end: 201306
  2. METHOTREXATE [Concomitant]
     Dosage: 20 MG, QWK
     Dates: start: 2012

REACTIONS (5)
  - Arthralgia [Not Recovered/Not Resolved]
  - Local swelling [Recovered/Resolved]
  - Joint stiffness [Not Recovered/Not Resolved]
  - Arthropathy [Not Recovered/Not Resolved]
  - Synovial cyst [Not Recovered/Not Resolved]
